FAERS Safety Report 18050843 (Version 1)
Quarter: 2020Q3

REPORT INFORMATION
  Report Type: Spontaneous
  Country: US (occurrence: US)
  Receive Date: 20200721
  Receipt Date: 20200721
  Transmission Date: 20201103
  Serious: Yes (Hospitalization)
  Sender: FDA-Public Use
  Company Number: US-TEVA-2020-US-1802824

PATIENT
  Age: 21 Year
  Sex: Male

DRUGS (2)
  1. CISPLATIN. [Suspect]
     Active Substance: CISPLATIN
     Indication: OSTEOSARCOMA
     Route: 065
  2. DOXORUBICIN [Suspect]
     Active Substance: DOXORUBICIN
     Indication: OSTEOSARCOMA
     Route: 065

REACTIONS (9)
  - Pulmonary artery thrombosis [Recovering/Resolving]
  - Deep vein thrombosis [Recovering/Resolving]
  - Vena cava thrombosis [Recovering/Resolving]
  - Vascular compression [Recovering/Resolving]
  - Atrial thrombosis [Recovering/Resolving]
  - Pain [Recovering/Resolving]
  - Pulmonary embolism [Recovering/Resolving]
  - Right ventricular dysfunction [Recovering/Resolving]
  - Cardiac ventricular thrombosis [Recovering/Resolving]
